FAERS Safety Report 10239079 (Version 1)
Quarter: 2014Q2

REPORT INFORMATION
  Report Type: Spontaneous
  Country: US (occurrence: US)
  Receive Date: 20140616
  Receipt Date: 20140616
  Transmission Date: 20141212
  Serious: No
  Sender: FDA-Public Use
  Company Number: US-B.I. PHARMACEUTICALS,INC./RIDGEFIELD-2014-BI-25543BP

PATIENT
  Age: 71 Year
  Sex: Female
  Weight: 77 kg

DRUGS (11)
  1. SPIRIVA [Suspect]
     Indication: CHRONIC OBSTRUCTIVE PULMONARY DISEASE
     Dosage: 18 MCG
     Route: 055
     Dates: start: 20140516
  2. LEVOTHYROXINE [Concomitant]
     Indication: HYPOTHYROIDISM
     Dosage: 50 MCG
     Route: 048
     Dates: start: 2009
  3. CEFDINIR [Concomitant]
     Indication: LUNG INFECTION
     Dosage: 600 MG
     Route: 048
     Dates: start: 20140527
  4. ALLOPURINOL [Concomitant]
     Indication: GOUT
     Dosage: 100 MG
     Route: 048
     Dates: start: 2009
  5. ACYCLOVIR [Concomitant]
     Indication: HERPES ZOSTER
     Dosage: 600 MG
     Route: 048
     Dates: start: 201405
  6. XANAX [Concomitant]
     Indication: ANXIETY
     Dosage: 0.5 MG
     Route: 048
     Dates: start: 2013
  7. FLEXERIL [Concomitant]
     Indication: MUSCLE SPASMS
     Route: 048
     Dates: start: 2013
  8. PERPHENAZINE [Concomitant]
     Indication: SCHIZOPHRENIA
     Dosage: 4 MG
     Route: 050
     Dates: start: 1999
  9. LORAZEPAM [Concomitant]
     Indication: INSOMNIA
     Dosage: 1 MG
     Route: 048
     Dates: start: 2009
  10. TEMAZEPAM [Concomitant]
     Indication: INSOMNIA
     Dosage: 30 MG
     Route: 048
     Dates: start: 2009
  11. FUROSEMIDE [Concomitant]
     Indication: LOCAL SWELLING
     Dosage: 40 MG
     Route: 048
     Dates: start: 2012

REACTIONS (2)
  - Pain in extremity [Not Recovered/Not Resolved]
  - Peripheral swelling [Not Recovered/Not Resolved]
